FAERS Safety Report 22241325 (Version 1)
Quarter: 2023Q2

REPORT INFORMATION
  Report Type: Spontaneous
  Country: US (occurrence: None)
  Receive Date: 20230421
  Receipt Date: 20230421
  Transmission Date: 20230721
  Serious: Yes (Other)
  Sender: FDA-Public Use
  Company Number: 2023A087350

PATIENT

DRUGS (2)
  1. FARXIGA [Suspect]
     Active Substance: DAPAGLIFLOZIN PROPANEDIOL
     Route: 048
  2. UNSPECIFIED INGREDIENT [Suspect]
     Active Substance: UNSPECIFIED INGREDIENT

REACTIONS (7)
  - Urinary bladder haemorrhage [Unknown]
  - Thrombosis [Unknown]
  - Blood urine present [Unknown]
  - Haemorrhage urinary tract [Unknown]
  - Urethral obstruction [Unknown]
  - Cardiac disorder [Unknown]
  - Urinary tract infection [Unknown]
